FAERS Safety Report 9033025 (Version 2)
Quarter: 2013Q1

REPORT INFORMATION
  Report Type: Spontaneous
  Country: JP (occurrence: JP)
  Receive Date: 20130128
  Receipt Date: 20130227
  Transmission Date: 20140127
  Serious: No
  Sender: FDA-Public Use
  Company Number: PHHY2013JP007376

PATIENT
  Age: 92 Year
  Sex: Female

DRUGS (6)
  1. VOLTAREN [Suspect]
     Indication: OSTEOARTHRITIS
     Route: 054
  2. REUSAL [Suspect]
     Indication: OSTEOARTHRITIS
  3. ALFAL [Concomitant]
     Indication: OSTEOPOROSIS
     Route: 048
  4. BONALON [Concomitant]
     Indication: OSTEOPOROSIS
  5. NORVASC [Concomitant]
     Indication: HYPERTENSION
     Route: 048
  6. MEVALOTIN [Concomitant]
     Indication: HYPERLIPIDAEMIA
     Route: 048

REACTIONS (1)
  - Eczema [Recovered/Resolved]
